FAERS Safety Report 19561498 (Version 1)
Quarter: 2021Q3

REPORT INFORMATION
  Report Type: Spontaneous
  Country: US (occurrence: US)
  Receive Date: 20210715
  Receipt Date: 20210715
  Transmission Date: 20211014
  Serious: Yes (Disabling)
  Sender: FDA-Public Use
  Company Number: None

PATIENT
  Age: 60 Year
  Sex: Female
  Weight: 55.35 kg

DRUGS (15)
  1. MAGNESIUM [Concomitant]
     Active Substance: MAGNESIUM
  2. MSM [Concomitant]
     Active Substance: DIMETHYL SULFONE
  3. DIAZEPAM. [Suspect]
     Active Substance: DIAZEPAM
     Indication: PRODUCT USED FOR UNKNOWN INDICATION
     Dosage: ?          QUANTITY:1 TABLET(S);?
     Route: 048
     Dates: start: 20200907
  4. VALSARTAN. [Concomitant]
     Active Substance: VALSARTAN
  5. DGL [Concomitant]
  6. NAC [Concomitant]
  7. FAMOTIDINE. [Concomitant]
     Active Substance: FAMOTIDINE
  8. VITAMIN C [Concomitant]
     Active Substance: ASCORBIC ACID
  9. LORATADINE. [Concomitant]
     Active Substance: LORATADINE
  10. CLONAZEPAM. [Suspect]
     Active Substance: CLONAZEPAM
     Indication: ANXIETY DISORDER
     Dosage: ?          QUANTITY:2 TABLET(S);?
     Route: 048
     Dates: start: 20190304, end: 20200803
  11. SESAMIN [Concomitant]
  12. DIAZEPAM. [Concomitant]
     Active Substance: DIAZEPAM
  13. PEPSIN GI [Concomitant]
  14. VIT D [Concomitant]
     Active Substance: VITAMIN D NOS
  15. DAO [Concomitant]

REACTIONS (3)
  - Hypomagnesaemia [None]
  - Panic attack [None]
  - Anxiety [None]
